FAERS Safety Report 4700527-9 (Version None)
Quarter: 2005Q2

REPORT INFORMATION
  Report Type: 
  Country: None (occurrence: None)
  Receive Date: 20050627
  Receipt Date: 20050627
  Transmission Date: 20051028
  Serious: Yes (Life-Threatening, Hospitalization)
  Sender: FDA-Public Use
  Company Number: None

PATIENT
  Sex: Female
  Weight: 49.8957 kg

DRUGS (1)
  1. GABITRIL [Suspect]
     Indication: SLEEP DISORDER
     Dosage: AS NEEDED
     Dates: start: 20041201, end: 20050625

REACTIONS (1)
  - CONVULSION [None]
